FAERS Safety Report 17324569 (Version 2)
Quarter: 2020Q1

REPORT INFORMATION
  Report Type: Report from Study
  Country: US (occurrence: US)
  Receive Date: 20200127
  Receipt Date: 20200207
  Transmission Date: 20200409
  Serious: Yes (Disabling, Other)
  Sender: FDA-Public Use
  Company Number: US-SA-2019SA327925

PATIENT
  Age: 51 Year
  Sex: Female

DRUGS (10)
  1. ACYCLOVIR [ACICLOVIR] [Concomitant]
     Active Substance: ACYCLOVIR
     Dosage: 1 TABLET, BID
     Route: 048
     Dates: start: 20180917
  2. ALEMTUZUMAB [Suspect]
     Active Substance: ALEMTUZUMAB
     Indication: MULTIPLE SCLEROSIS
     Dosage: 12 MG, QD
     Route: 041
     Dates: start: 20180522, end: 20180524
  3. AMOXICILLIN. [Concomitant]
     Active Substance: AMOXICILLIN
     Dosage: UNK
     Route: 065
     Dates: start: 20180328
  4. HYDROXYZINE HCL [Concomitant]
     Active Substance: HYDROXYZINE HYDROCHLORIDE
     Dosage: 1 DF, QD
     Route: 048
     Dates: start: 20180515
  5. RANITIDINE. [Concomitant]
     Active Substance: RANITIDINE
     Dosage: 1 TABLET, QD
     Route: 048
     Dates: start: 20180515
  6. AMOXIL [AMOXICILLIN] [Concomitant]
     Dosage: 1 TABLET, Q12H
     Route: 048
     Dates: start: 20171208
  7. HYDROCODONE BITARTRATE AND ACETAMINOPHEN [Concomitant]
     Active Substance: ACETAMINOPHEN\HYDROCODONE BITARTRATE
     Dosage: UNK
     Route: 065
     Dates: start: 20180328
  8. VITAMIN D [VITAMIN D NOS] [Concomitant]
     Active Substance: VITAMIN D NOS
     Dosage: UNK
     Route: 065
  9. BACTRIM DS [Concomitant]
     Active Substance: SULFAMETHOXAZOLE\TRIMETHOPRIM
     Dosage: 1 DF, Q12H
     Route: 048
     Dates: start: 20190218
  10. TECFIDERA [Concomitant]
     Active Substance: DIMETHYL FUMARATE
     Dosage: UNK
     Route: 065
     Dates: start: 20170126

REACTIONS (20)
  - Urinary tract infection [Unknown]
  - Protein urine present [Unknown]
  - Gait disturbance [Unknown]
  - Dysarthria [Unknown]
  - Blood creatinine abnormal [Unknown]
  - Immune thrombocytopenic purpura [Not Recovered/Not Resolved]
  - Blood urine present [Unknown]
  - White blood cells urine positive [Unknown]
  - Urge incontinence [Unknown]
  - Blood thyroid stimulating hormone abnormal [Unknown]
  - Urine analysis abnormal [Unknown]
  - Platelet count decreased [Unknown]
  - Micturition urgency [Unknown]
  - Kinesiophobia [Unknown]
  - Dysgraphia [Unknown]
  - Hypoaesthesia [Unknown]
  - Muscular weakness [Unknown]
  - Autoimmune disorder [Unknown]
  - Fatigue [Unknown]
  - Depression [Unknown]

NARRATIVE: CASE EVENT DATE: 201907
